FAERS Safety Report 21896687 (Version 1)
Quarter: 2023Q1

REPORT INFORMATION
  Report Type: Spontaneous
  Country: US (occurrence: None)
  Receive Date: 20230120
  Receipt Date: 20230120
  Transmission Date: 20230418
  Serious: Yes (Hospitalization)
  Sender: FDA-Public Use
  Company Number: None

PATIENT
  Age: 27 Year
  Sex: Female

DRUGS (1)
  1. HUMIRA [Suspect]
     Active Substance: ADALIMUMAB
     Dosage: 80MG OTHER  SUBCUTANEOUS?
     Route: 058

REACTIONS (2)
  - Sensory loss [None]
  - Product quality issue [None]

NARRATIVE: CASE EVENT DATE: 20230105
